FAERS Safety Report 24124789 (Version 1)
Quarter: 2024Q3

REPORT INFORMATION
  Report Type: Spontaneous
  Country: PT (occurrence: None)
  Receive Date: 20240723
  Receipt Date: 20240723
  Transmission Date: 20241017
  Serious: Yes (Other)
  Sender: ASTRAZENECA
  Company Number: 2024A160833

PATIENT
  Age: 67 Year
  Sex: Male

DRUGS (1)
  1. DAPAGLIFLOZIN [Suspect]
     Active Substance: DAPAGLIFLOZIN
     Indication: Diabetes mellitus
     Dosage: 10 MG
     Route: 048
     Dates: start: 20231130

REACTIONS (1)
  - Ejaculation failure [Recovered/Resolved]

NARRATIVE: CASE EVENT DATE: 20231130
